FAERS Safety Report 16091264 (Version 1)
Quarter: 2019Q1

REPORT INFORMATION
  Report Type: Spontaneous
  Country: US (occurrence: US)
  Receive Date: 20190319
  Receipt Date: 20190319
  Transmission Date: 20190418
  Serious: Yes (Hospitalization)
  Sender: FDA-Public Use
  Company Number: US-NOVOPROD-651634

PATIENT
  Age: 76 Year
  Sex: Male
  Weight: 98.43 kg

DRUGS (1)
  1. LEVEMIR [Suspect]
     Active Substance: INSULIN DETEMIR
     Indication: TYPE 2 DIABETES MELLITUS
     Dosage: 38 IU, QD (AT BEDTIME)
     Route: 058

REACTIONS (1)
  - Cardiac failure congestive [Unknown]
